FAERS Safety Report 6379308-9 (Version None)
Quarter: 2009Q3

REPORT INFORMATION
  Report Type: 
  Country: None (occurrence: None)
  Receive Date: 20090928
  Receipt Date: 20090923
  Transmission Date: 20100115
  Serious: Yes (Death)
  Sender: FDA-Public Use
  Company Number: US-ASTRAZENECA-2009SE15041

PATIENT
  Age: 44 Year
  Sex: Female

DRUGS (5)
  1. SEROQUEL [Suspect]
     Route: 048
  2. CYMBALTA [Concomitant]
     Route: 048
  3. GEODON [Concomitant]
     Route: 048
  4. LAMICTAL [Concomitant]
     Route: 048
  5. VALIUM [Concomitant]
     Route: 048

REACTIONS (1)
  - DEATH [None]
